FAERS Safety Report 13317519 (Version 1)
Quarter: 2017Q1

REPORT INFORMATION
  Report Type: Spontaneous
  Country: GB (occurrence: GB)
  Receive Date: 20170310
  Receipt Date: 20170310
  Transmission Date: 20170428
  Serious: Yes (Life-Threatening)
  Sender: FDA-Public Use
  Company Number: GB-AUROBINDO-AUR-APL-2017-30502

PATIENT
  Age: 58 Year
  Sex: Female

DRUGS (1)
  1. RISPERIDONE. [Suspect]
     Active Substance: RISPERIDONE
     Indication: DEPRESSION
     Dosage: 500 ?G, 5 TIMES A DAY
     Route: 048
     Dates: start: 20150515, end: 20161205

REACTIONS (1)
  - Suicidal ideation [Recovered/Resolved]
